FAERS Safety Report 6398905-8 (Version None)
Quarter: 2009Q4

REPORT INFORMATION
  Report Type: 
  Country: None (occurrence: None)
  Receive Date: 20091013
  Receipt Date: 20091001
  Transmission Date: 20100525
  Serious: Yes (Hospitalization)
  Sender: FDA-Public Use
  Company Number: IT-PFIZER INC-2009277413

PATIENT
  Age: 74 Year

DRUGS (4)
  1. MEDROL [Suspect]
     Indication: BACK PAIN
     Dosage: 16 MG DAILY
     Route: 048
     Dates: start: 20080809, end: 20080816
  2. COVERSYL [Suspect]
     Indication: HYPERTENSION
     Dosage: 2 MG DAILY
     Route: 048
     Dates: start: 20040401, end: 20090816
  3. PRIDINOL [Concomitant]
     Indication: BACK PAIN
     Dosage: UNK
     Dates: start: 20090809, end: 20090816
  4. LEXOTAN [Concomitant]
     Dosage: UNK
     Route: 048
     Dates: start: 20060816

REACTIONS (6)
  - ASTHENIA [None]
  - DECREASED APPETITE [None]
  - HYPONATRAEMIC SYNDROME [None]
  - MALAISE [None]
  - PRESYNCOPE [None]
  - VOMITING [None]
